FAERS Safety Report 6600754-X (Version None)
Quarter: 2010Q1

REPORT INFORMATION
  Report Type: 
  Country: None (occurrence: None)
  Receive Date: 20100225
  Receipt Date: 20100223
  Transmission Date: 20100710
  Serious: No
  Sender: FDA-Public Use
  Company Number: US-ASTRAZENECA-2009UW20479

PATIENT
  Age: 49 Year
  Sex: Male
  Weight: 108.9 kg

DRUGS (12)
  1. SEROQUEL [Suspect]
     Indication: BIPOLAR DISORDER
     Route: 048
     Dates: start: 20020101, end: 20070101
  2. SEROQUEL [Suspect]
     Indication: DEPRESSION
     Route: 048
     Dates: start: 20020101, end: 20070101
  3. DEPAKOTE [Concomitant]
     Indication: BIPOLAR DISORDER
     Dates: start: 20050101
  4. DEPAKOTE [Concomitant]
     Indication: DEPRESSION
     Dates: start: 20050101
  5. LITHIUM [Concomitant]
     Indication: BIPOLAR DISORDER
  6. LITHIUM [Concomitant]
     Indication: DEPRESSION
  7. CLONAZEPAM [Concomitant]
     Indication: BIPOLAR DISORDER
     Dates: start: 20060101
  8. CLONAZEPAM [Concomitant]
     Indication: DEPRESSION
     Dates: start: 20060101
  9. ZYPREXA [Concomitant]
     Indication: BIPOLAR DISORDER
     Dates: start: 20060101, end: 20060101
  10. ZYPREXA [Concomitant]
     Indication: DEPRESSION
     Dates: start: 20060101, end: 20060101
  11. ABILIFY [Concomitant]
     Dates: start: 20080101, end: 20080101
  12. CLOZARIL [Concomitant]
     Dates: start: 20090101, end: 20090101

REACTIONS (4)
  - BLOOD CHOLESTEROL INCREASED [None]
  - HEPATITIS C [None]
  - HYPERLIPIDAEMIA [None]
  - TYPE 2 DIABETES MELLITUS [None]
